FAERS Safety Report 13660364 (Version 4)
Quarter: 2019Q2

REPORT INFORMATION
  Report Type: Report from Study
  Country: CN (occurrence: CN)
  Receive Date: 20170616
  Receipt Date: 20190612
  Transmission Date: 20190711
  Serious: Yes (Hospitalization)
  Sender: FDA-Public Use
  Company Number: CN-ASTELLAS-2017US003189

PATIENT
  Sex: Female

DRUGS (1)
  1. ERLOTINIB [Suspect]
     Active Substance: ERLOTINIB
     Indication: NON-SMALL CELL LUNG CANCER
     Route: 048
     Dates: start: 20160926

REACTIONS (10)
  - Myringitis [Not Recovered/Not Resolved]
  - Decreased appetite [Unknown]
  - Eczema [Unknown]
  - Ageusia [Unknown]
  - Rash [Unknown]
  - Memory impairment [Unknown]
  - Skin exfoliation [Unknown]
  - Vision blurred [Unknown]
  - Diarrhoea [Unknown]
  - Paronychia [Not Recovered/Not Resolved]
